FAERS Safety Report 5084006-8 (Version None)
Quarter: 2006Q3

REPORT INFORMATION
  Report Type: 
  Country: None (occurrence: None)
  Receive Date: 20060814
  Receipt Date: 20060808
  Transmission Date: 20061208
  Serious: Yes (Hospitalization, Other)
  Sender: FDA-Public Use
  Company Number: HQWYE950305JUN06

PATIENT
  Age: 48 Year
  Sex: Male

DRUGS (1)
  1. CYCLOSPORINE [Suspect]
     Indication: PROPHYLAXIS AGAINST TRANSPLANT REJECTION
     Dosage: ^VARIABLE^ ORAL
     Route: 048
     Dates: start: 20060522

REACTIONS (4)
  - BACILLUS INFECTION [None]
  - DEHYDRATION [None]
  - INTESTINAL PERFORATION [None]
  - PERITONITIS BACTERIAL [None]
